FAERS Safety Report 7885146-8 (Version None)
Quarter: 2011Q4

REPORT INFORMATION
  Report Type: 
  Country: None (occurrence: None)
  Receive Date: 20111102
  Receipt Date: 20111020
  Transmission Date: 20120403
  Serious: Yes (Hospitalization, Other)
  Sender: FDA-Public Use
  Company Number: CO-ELI_LILLY_AND_COMPANY-CO201107006065

PATIENT
  Age: 82 Year
  Sex: Male
  Weight: 80 kg

DRUGS (15)
  1. BYETTA [Suspect]
     Indication: TYPE 2 DIABETES MELLITUS
     Dosage: 5 UG, BID
     Route: 058
     Dates: start: 20110713, end: 20110718
  2. BYETTA [Suspect]
     Dosage: 5 UG, QD
     Route: 058
     Dates: start: 20110726
  3. FUROSEMIDE [Concomitant]
  4. NPH INSULIN [Concomitant]
     Dosage: 45 IU, EACH MORNING
  5. ACETAMINOPHEN [Concomitant]
  6. CALCIUM [Concomitant]
  7. LOSARTAN POTASSIUM [Concomitant]
  8. COLCHICINE [Concomitant]
  9. FOLIC ACID [Concomitant]
  10. LOVASTATIN [Concomitant]
  11. AMLODIPINE [Concomitant]
  12. NPH INSULIN [Concomitant]
     Dosage: 40 IU, EACH EVENING
  13. CLONIDINE [Concomitant]
  14. ALLOPURINOL [Concomitant]
  15. ASPIRIN [Concomitant]

REACTIONS (12)
  - BLOOD GLUCOSE DECREASED [None]
  - VISION BLURRED [None]
  - BLOOD GLUCOSE INCREASED [None]
  - OFF LABEL USE [None]
  - DECREASED APPETITE [None]
  - VOMITING [None]
  - DISCOMFORT [None]
  - WEIGHT DECREASED [None]
  - MALAISE [None]
  - DIABETIC COMA [None]
  - DEPRESSED MOOD [None]
  - HYPERTENSION [None]
